FAERS Safety Report 19985280 (Version 1)
Quarter: 2021Q4

REPORT INFORMATION
  Report Type: Spontaneous
  Country: US (occurrence: US)
  Receive Date: 20211022
  Receipt Date: 20211022
  Transmission Date: 20220303
  Serious: No
  Sender: FDA-Public Use
  Company Number: None

PATIENT
  Age: 33 Year
  Sex: Female
  Weight: 60.75 kg

DRUGS (1)
  1. AIMOVIG [Suspect]
     Active Substance: ERENUMAB-AOOE
     Indication: Migraine
     Dosage: ?          QUANTITY:1 INJECTION(S);OTHER FREQUENCY:MONTHLY;
     Route: 030

REACTIONS (5)
  - Pruritus [None]
  - Blister [None]
  - Hypoaesthesia [None]
  - Paraesthesia [None]
  - Injection related reaction [None]

NARRATIVE: CASE EVENT DATE: 20210601
